FAERS Safety Report 9753642 (Version 2)
Quarter: 2014Q1

REPORT INFORMATION
  Report Type: Report from Study
  Country: NL (occurrence: NL)
  Receive Date: 20131213
  Receipt Date: 20140127
  Transmission Date: 20141002
  Serious: Yes (Other)
  Sender: FDA-Public Use
  Company Number: PHHY2013NL145886

PATIENT
  Sex: Male

DRUGS (11)
  1. ZOMETA [Suspect]
     Indication: METASTASES TO BONE
     Dosage: 4 MG, PER 100ML ONCE EVERY 6 WEEKS
     Route: 042
  2. ZOMETA [Suspect]
     Dosage: 4 MG, PER 100ML ONCE EVERY 6 WEEKS
     Route: 042
     Dates: start: 20130808
  3. ZOMETA [Suspect]
     Dosage: 4 MG, PER 100ML ONCE EVERY 6 WEEKS
     Route: 042
     Dates: start: 20130918
  4. ZOMETA [Suspect]
     Dosage: 4 MG, PER 100ML ONCE EVERY 6 WEEKS
     Route: 042
     Dates: start: 20131031
  5. FENTANYL [Concomitant]
     Dosage: 100 UKN, UNK
  6. NITROFURANTOINE M.C. [Concomitant]
     Dosage: 100 MG, 1DD1
  7. NAPROXEN [Concomitant]
     Dosage: 50 MG, 2DD1 WHEN NEEDED
  8. AMITRIPTYLINE [Concomitant]
     Dosage: 10 MG, 1DD1
  9. OXYCODON [Concomitant]
     Dosage: 20 MG, 2DD1
  10. OMEPRAZOLE [Concomitant]
     Dosage: 40 MG, 1DD1
  11. VESICARE [Concomitant]
     Dosage: UNK UKN, 1DD1

REACTIONS (4)
  - Prostate cancer metastatic [Unknown]
  - Malignant neoplasm progression [Unknown]
  - Metastases to bone [Unknown]
  - Terminal state [Unknown]
